FAERS Safety Report 13967688 (Version 3)
Quarter: 2017Q4

REPORT INFORMATION
  Report Type: Spontaneous
  Country: FI (occurrence: FI)
  Receive Date: 20170914
  Receipt Date: 20171213
  Transmission Date: 20180320
  Serious: Yes (Other)
  Sender: FDA-Public Use
  Company Number: FI-SUN PHARMACEUTICAL INDUSTRIES LTD-2017RR-149598

PATIENT
  Age: 69 Year
  Sex: Female

DRUGS (7)
  1. NEXIUM [Concomitant]
     Active Substance: ESOMEPRAZOLE MAGNESIUM
     Indication: DYSPEPSIA
     Dosage: AS NECESSARY
     Route: 048
  2. LORSARTAN/HYDROCHLOROTHIAZIDE [Concomitant]
     Indication: HYPERTENSION
     Dosage: 100 MG IN THE MORNINGS
     Route: 048
  3. PANADOL [Concomitant]
     Active Substance: ACETAMINOPHEN
     Indication: PAIN
     Dosage: UNK
     Route: 048
  4. FEMOSTON CONTI [Concomitant]
     Active Substance: DYDROGESTERONE\ESTRADIOL
     Indication: MENOPAUSAL SYMPTOMS
     Dosage: 0.5/2.5 MG
     Route: 048
  5. ATORVASTATIN ORION [Suspect]
     Active Substance: ATORVASTATIN CALCIUM
     Indication: BLOOD CHOLESTEROL INCREASED
     Dosage: 10 MG TABLETS IN THE EVENINGS
     Route: 048
     Dates: start: 201603, end: 201709
  6. AMLODIPIN ORION [Concomitant]
     Indication: HYPERTENSION
     Dosage: 5 MG IN THE EVENINGS
     Route: 048
  7. XELEVIA [Concomitant]
     Active Substance: SITAGLIPTIN PHOSPHATE
     Indication: TYPE 2 DIABETES MELLITUS
     Dosage: 100 MG IN THE EVENINGS
     Route: 048

REACTIONS (5)
  - Pain in extremity [Not Recovered/Not Resolved]
  - Dyspnoea [Not Recovered/Not Resolved]
  - Musculoskeletal disorder [Not Recovered/Not Resolved]
  - Muscle spasms [Recovering/Resolving]
  - Myositis [Not Recovered/Not Resolved]
